FAERS Safety Report 12932434 (Version 1)
Quarter: 2016Q4

REPORT INFORMATION
  Report Type: Spontaneous
  Country: US (occurrence: US)
  Receive Date: 20161111
  Receipt Date: 20161111
  Transmission Date: 20170207
  Serious: No
  Sender: FDA-Public Use
  Company Number: US-LEO PHARMA-244686

PATIENT
  Age: 57 Year
  Sex: Female

DRUGS (4)
  1. VITAMINS AND SUPPLEMENTS [Concomitant]
     Indication: PRODUCT USED FOR UNKNOWN INDICATION
  2. ZITHROMAX [Concomitant]
     Active Substance: AZITHROMYCIN DIHYDRATE
     Indication: LYME DISEASE
  3. PICATO [Suspect]
     Active Substance: INGENOL MEBUTATE
     Indication: SOLAR LENTIGO
     Route: 061
     Dates: start: 20161106, end: 20161107
  4. SEPTRA [Concomitant]
     Active Substance: SULFAMETHOXAZOLE\TRIMETHOPRIM
     Indication: LYME DISEASE

REACTIONS (8)
  - Incorrect dose administered [Unknown]
  - Application site discharge [Recovered/Resolved]
  - Application site vesicles [Recovered/Resolved]
  - Application site pain [Recovering/Resolving]
  - Application site discomfort [Not Recovered/Not Resolved]
  - Application site swelling [Not Recovered/Not Resolved]
  - Drug administered at inappropriate site [Unknown]
  - Application site scab [Not Recovered/Not Resolved]

NARRATIVE: CASE EVENT DATE: 20161106
